FAERS Safety Report 6659914-4 (Version None)
Quarter: 2010Q1

REPORT INFORMATION
  Report Type: 
  Country: None (occurrence: None)
  Receive Date: 20100326
  Receipt Date: 20100316
  Transmission Date: 20100710
  Serious: Yes (Hospitalization, Other)
  Sender: FDA-Public Use
  Company Number: 2009-04765

PATIENT
  Age: 50 Year
  Weight: 63 kg

DRUGS (5)
  1. VELCADE [Suspect]
     Indication: MULTIPLE MYELOMA
     Dosage: 3.5 MG; 2 MG
     Dates: start: 20090703, end: 20091105
  2. REVLIMID [Suspect]
     Indication: MULTIPLE MYELOMA
     Dosage: 15 MG, ORAL
     Route: 048
     Dates: start: 20090922, end: 20091002
  3. ADRIAMYCIN PFS [Concomitant]
  4. PREDNISONE TAB [Concomitant]
  5. DEXAMETHASONE [Concomitant]

REACTIONS (8)
  - ATRIAL FLUTTER [None]
  - CARDIAC FAILURE CONGESTIVE [None]
  - DRUG INEFFECTIVE [None]
  - DRUG TOXICITY [None]
  - IATROGENIC INJURY [None]
  - RENAL FAILURE CHRONIC [None]
  - SEPTIC SHOCK [None]
  - TACHYARRHYTHMIA [None]
